FAERS Safety Report 7090803-X (Version None)
Quarter: 2010Q4

REPORT INFORMATION
  Report Type: 
  Country: None (occurrence: None)
  Receive Date: 20101109
  Receipt Date: 20101029
  Transmission Date: 20110411
  Serious: Yes (Hospitalization)
  Sender: FDA-Public Use
  Company Number: JP-GENZYME-THYM-1000989

PATIENT
  Sex: Male
  Weight: 53 kg

DRUGS (4)
  1. THYMOGLOBULIN [Suspect]
     Indication: APLASTIC ANAEMIA
     Dosage: 175 MG, QD
     Route: 042
     Dates: start: 20090303, end: 20090307
  2. CYCLOSPORINE [Concomitant]
     Indication: APLASTIC ANAEMIA
     Dosage: 125 MG, QD
     Dates: start: 20080909
  3. METHYLPREDNISOLONE SODIUM SUCCINATE [Concomitant]
     Indication: APLASTIC ANAEMIA
     Dosage: 125 MG, QD
     Dates: start: 20090303, end: 20090311
  4. FAMOTIDINE [Concomitant]
     Indication: APLASTIC ANAEMIA
     Dosage: 20 MG, QD
     Dates: start: 20090303, end: 20090303

REACTIONS (5)
  - CYTOMEGALOVIRUS OESOPHAGITIS [None]
  - HERPES OESOPHAGITIS [None]
  - PNEUMONIA [None]
  - SEPTIC SHOCK [None]
  - STOMATITIS [None]
